FAERS Safety Report 19417757 (Version 2)
Quarter: 2023Q1

REPORT INFORMATION
  Report Type: Spontaneous
  Country: US (occurrence: US)
  Receive Date: 20210615
  Receipt Date: 20230309
  Transmission Date: 20230418
  Serious: Yes (Other)
  Sender: FDA-Public Use
  Company Number: US-PFIZER INC-2021647844

PATIENT
  Age: 85 Year
  Sex: Male

DRUGS (1)
  1. BEVACIZUMAB [Suspect]
     Active Substance: BEVACIZUMAB
     Indication: Diabetic retinopathy
     Dosage: 1.25 MG/0.05 CC
     Route: 031

REACTIONS (4)
  - Retinal vascular occlusion [Recovering/Resolving]
  - Off label use [Unknown]
  - Off label use [Unknown]
  - Product use issue [Unknown]
